FAERS Safety Report 8304278-3 (Version None)
Quarter: 2012Q2

REPORT INFORMATION
  Report Type: 
  Country: None (occurrence: None)
  Receive Date: 20120423
  Receipt Date: 20120417
  Transmission Date: 20120825
  Serious: Yes (Death)
  Sender: FDA-Public Use
  Company Number: PHEH2012US008439

PATIENT
  Sex: Male
  Weight: 185 kg

DRUGS (9)
  1. TASIGNA [Suspect]
     Indication: ACUTE LYMPHOCYTIC LEUKAEMIA (IN REMISSION)
     Dosage: 400 MG, BID
     Route: 048
     Dates: start: 20120403, end: 20120411
  2. FOLIC ACID W/VITAMIN B NOS [Concomitant]
  3. FLOMAX [Concomitant]
  4. PREDNISONE TAB [Concomitant]
  5. ASPIRIN [Concomitant]
  6. COUMADIN [Concomitant]
  7. VITAMIN B6 [Concomitant]
  8. NORVASC [Concomitant]
  9. LOPRESSOR [Concomitant]

REACTIONS (1)
  - DEATH [None]
